FAERS Safety Report 6387076-X (Version None)
Quarter: 2009Q4

REPORT INFORMATION
  Report Type: 
  Country: None (occurrence: None)
  Receive Date: 20091002
  Receipt Date: 20090923
  Transmission Date: 20100525
  Serious: Yes (Hospitalization)
  Sender: FDA-Public Use
  Company Number: BR-AVENTIS-200920802GDDC

PATIENT
  Sex: Female

DRUGS (11)
  1. LANTUS [Suspect]
     Route: 058
     Dates: start: 20060101
  2. LANTUS [Suspect]
     Route: 058
     Dates: start: 20060101
  3. OPTIPEN (INSULIN PUMP) [Suspect]
     Dates: start: 20060101
  4. ANALGESICS [Concomitant]
     Indication: PAIN
  5. ATENOLOL [Concomitant]
     Indication: BLOOD PRESSURE
  6. ATENOLOL [Concomitant]
  7. ENALAPRIL MALEATE [Concomitant]
  8. ENALAPRIL MALEATE [Concomitant]
     Indication: BLOOD PRESSURE
  9. PARIET [Concomitant]
     Indication: GASTRIC DISORDER
     Dates: start: 20090101
  10. DIGESAN                            /00576701/ [Concomitant]
     Indication: GASTRIC DISORDER
     Dates: start: 20090101
  11. HUMALOG [Concomitant]
     Route: 058

REACTIONS (12)
  - EAR DISORDER [None]
  - FATIGUE [None]
  - GASTRIC HAEMORRHAGE [None]
  - GASTRIC POLYPS [None]
  - GINGIVAL DISORDER [None]
  - HUNGER [None]
  - HYPERGLYCAEMIA [None]
  - INJECTION SITE HAEMORRHAGE [None]
  - PAIN IN EXTREMITY [None]
  - PARAESTHESIA [None]
  - PRODUCT QUALITY ISSUE [None]
  - TOOTH DISORDER [None]
